FAERS Safety Report 5578165-8 (Version None)
Quarter: 2007Q4

REPORT INFORMATION
  Report Type: 
  Country: None (occurrence: None)
  Receive Date: 20071227
  Receipt Date: 20071219
  Transmission Date: 20080405
  Serious: Yes (Death)
  Sender: FDA-Public Use
  Company Number: 114-C5013-07060567

PATIENT
  Age: 48 Year
  Sex: Female

DRUGS (1)
  1. CC-5013 (LENALIDOMIDE) (CAPSULES) [Suspect]
     Indication: MULTIPLE MYELOMA
     Dosage: 25 MG, 1 IN 1 D, ORAL
     Route: 048
     Dates: start: 20070531, end: 20070101

REACTIONS (2)
  - PNEUMONIA [None]
  - SEPSIS [None]
